FAERS Safety Report 11936535 (Version 1)
Quarter: 2016Q1

REPORT INFORMATION
  Report Type: Spontaneous
  Country: US (occurrence: US)
  Receive Date: 20160121
  Receipt Date: 20160121
  Transmission Date: 20160526
  Serious: Yes (Death, Hospitalization)
  Sender: FDA-Public Use
  Company Number: US-BAYER-2016-008520

PATIENT
  Age: 77 Year
  Sex: Male

DRUGS (2)
  1. DABIGATRAN [Interacting]
     Active Substance: DABIGATRAN
     Dosage: 150 MG, BID
  2. ACETYLSALICYLIC ACID({=100 MG) [Suspect]
     Active Substance: ASPIRIN
     Dosage: UNK, QD

REACTIONS (7)
  - Labelled drug-drug interaction medication error [None]
  - Large intestine perforation [Fatal]
  - Multiple organ dysfunction syndrome [Fatal]
  - Incision site haemorrhage [Fatal]
  - Procedural haemorrhage [Fatal]
  - Peritonitis [Fatal]
  - Disseminated intravascular coagulation [Fatal]
